FAERS Safety Report 4679935-0 (Version None)
Quarter: 2005Q2

REPORT INFORMATION
  Report Type: 
  Country: None (occurrence: None)
  Receive Date: 20050602
  Receipt Date: 20050429
  Transmission Date: 20051028
  Serious: Yes (Life-Threatening, Hospitalization, Other)
  Sender: FDA-Public Use
  Company Number: PHHO2005IN06989

PATIENT
  Age: 40 Year
  Sex: Male
  Weight: 52 kg

DRUGS (3)
  1. HYDREA [Concomitant]
  2. GLEEVEC [Suspect]
     Indication: CHRONIC MYELOID LEUKAEMIA
     Dosage: 400 MG, QD
     Route: 048
     Dates: start: 20021023, end: 20041128
  3. GLEEVEC [Suspect]
     Dosage: 800 MG, QD
     Route: 048
     Dates: end: 20041128

REACTIONS (7)
  - ANAEMIA [None]
  - DRUG INEFFECTIVE [None]
  - DRUG TOLERANCE DECREASED [None]
  - LEUKAEMIA RECURRENT [None]
  - PYREXIA [None]
  - SPLENOMEGALY [None]
  - VOMITING [None]
